FAERS Safety Report 19838417 (Version 1)
Quarter: 2021Q3

REPORT INFORMATION
  Report Type: Spontaneous
  Country: US (occurrence: US)
  Receive Date: 20210915
  Receipt Date: 20210915
  Transmission Date: 20211014
  Serious: No
  Sender: FDA-Public Use
  Company Number: None

PATIENT
  Age: 64 Year
  Sex: Male
  Weight: 125.55 kg

DRUGS (4)
  1. ALBUTEROL INHALER [Concomitant]
     Active Substance: ALBUTEROL
  2. CASIRIVIMAB/IMDEVIMAB [Suspect]
     Active Substance: CASIRIVIMAB\IMDEVIMAB
     Indication: SARS-COV-2 TEST POSITIVE
     Route: 042
     Dates: start: 20210915, end: 20210915
  3. ALLOPURINOL 100 MG PO QD [Concomitant]
  4. TESTOSTERONE 200MG/ML Q2 WEEKS [Concomitant]

REACTIONS (3)
  - Apnoea [None]
  - Dyspnoea [None]
  - Sputum discoloured [None]

NARRATIVE: CASE EVENT DATE: 20210915
